FAERS Safety Report 8412329 (Version 3)
Quarter: 2012Q4

REPORT INFORMATION
  Report Type: Spontaneous
  Country: US (occurrence: None)
  Receive Date: 20111229
  Receipt Date: 20120821
  Transmission Date: 20130627
  Serious: Yes (Hospitalization, Other)
  Sender: FDA-Public Use
  Company Number: CIP11001276

PATIENT
  Age: 76 Year
  Sex: Female

DRUGS (12)
  1. ACTONEL [Suspect]
     Indication: OSTEOPOROSIS POSTMENOPAUSAL
     Dosage: 35 MG ONCE WEEKLY, ORAL
     Route: 048
     Dates: start: 20021030, end: 2003
  2. DIDRONEL [Suspect]
     Indication: OSTEOPOROSIS POSTMENOPAUSAL
     Dosage: 200 MG TWICE DAILY  TIMES 2 WEEKS Q 10 WEEKS, ORAL
     Route: 048
     Dates: start: 19931221, end: 19951227
  3. FOSAMAX [Suspect]
     Indication: OSTEOPOROSIS POSTMENOPAUSAL
     Dosage: 10 MGDAILY, ORAL
     Route: 048
     Dates: start: 20010525, end: 200207
  4. FOSAMAX [Suspect]
     Indication: OSTEOPOROSIS POSTMENOPAUSAL
     Route: 048
     Dates: start: 19951229, end: 20010525
  5. BONIVA [Suspect]
     Indication: OSTEOPOROSIS POSTMENOPAUSAL
     Dosage: 150 MG ONCE MONTHLY, ORAL
     Route: 048
     Dates: start: 20051229, end: 200904
  6. BONIVA [Suspect]
     Indication: OSTEOPENIA
     Dosage: 150 MG ONCE MONTHLY, ORAL
     Route: 048
     Dates: start: 20051229, end: 200904
  7. CEPHALEXIN /00145501/ (CEFALEXIN) [Concomitant]
  8. COZAAR [Concomitant]
  9. ARTHROTEC /00372302 (DICLOFENAC SODIUM) [Concomitant]
  10. ACYCLOVIR /00587301/ (ACICLOVIR) [Concomitant]
  11. LIDODERM [Concomitant]
  12. HYDROCODONE W/APAP (HYDROCODONE, PARACETAMOL) [Concomitant]

REACTIONS (17)
  - FALL [None]
  - FEMUR FRACTURE [None]
  - Fracture displacement [None]
  - PAIN [None]
  - LOW TURNOVER OSTEOPATHY [None]
  - ABDOMINAL DISCOMFORT [None]
  - OEDEMA PERIPHERAL [None]
  - Stress fracture [None]
  - HAEMATOMA [None]
  - MUSCULAR WEAKNESS [None]
  - GAIT DISTURBANCE [None]
  - Scar [None]
  - Fracture delayed union [None]
  - BURSITIS [None]
  - MYOPATHY [None]
  - HYPERPARATHYROIDISM PRIMARY [None]
  - ADHESION [None]
